FAERS Safety Report 19824337 (Version 1)
Quarter: 2021Q3

REPORT INFORMATION
  Report Type: Spontaneous
  Country: US (occurrence: US)
  Receive Date: 20210913
  Receipt Date: 20210913
  Transmission Date: 20211014
  Serious: No
  Sender: FDA-Public Use
  Company Number: US-PERRIGO-20US012545

PATIENT
  Sex: Male
  Weight: 83.9 kg

DRUGS (2)
  1. TESTOSTERONE. [Suspect]
     Active Substance: TESTOSTERONE
     Indication: BLOOD TESTOSTERONE DECREASED
     Dosage: 60.75 MG, QD
     Route: 061
     Dates: start: 2018
  2. TESTOSTERONE. [Suspect]
     Active Substance: TESTOSTERONE
     Dosage: LESS THAN 60.75 MG, PRN
     Route: 061

REACTIONS (2)
  - Asthenia [Unknown]
  - Libido decreased [Not Recovered/Not Resolved]

NARRATIVE: CASE EVENT DATE: 2018
